FAERS Safety Report 4771033-0 (Version None)
Quarter: 2005Q3

REPORT INFORMATION
  Report Type: 
  Country: None (occurrence: None)
  Receive Date: 20050914
  Receipt Date: 20050831
  Transmission Date: 20060218
  Serious: Yes (Hospitalization, Other)
  Sender: FDA-Public Use
  Company Number: EWC050945642

PATIENT
  Age: 41 Year
  Sex: Female

DRUGS (4)
  1. ZYPREXA [Suspect]
     Indication: SCHIZOAFFECTIVE DISORDER
     Dosage: 230 MG IN THE EVENING
     Dates: start: 20050708, end: 20050811
  2. CLONAZEPAM [Concomitant]
  3. PAROXETINE [Concomitant]
  4. CIPRALEX (ESCITALOPRAM OXALATE) [Concomitant]

REACTIONS (4)
  - COMA [None]
  - MULTIPLE DRUG OVERDOSE [None]
  - PNEUMONIA [None]
  - SUICIDE ATTEMPT [None]
